FAERS Safety Report 9223095 (Version 5)
Quarter: 2014Q2

REPORT INFORMATION
  Report Type: Spontaneous
  Country: US (occurrence: US)
  Receive Date: 20130410
  Receipt Date: 20140425
  Transmission Date: 20141212
  Serious: No
  Sender: FDA-Public Use
  Company Number: US-009507513-1304USA004474

PATIENT
  Sex: Male
  Weight: 83.9 kg

DRUGS (2)
  1. PROPECIA [Suspect]
     Indication: ANDROGENETIC ALOPECIA
     Dosage: 1 MG, UNK
     Route: 048
     Dates: start: 200309, end: 201007
  2. PHENOBARBITAL [Concomitant]
     Indication: EPILEPSY
     Dosage: UNK
     Dates: start: 1977

REACTIONS (10)
  - Asthenospermia [Unknown]
  - Cognitive disorder [Not Recovered/Not Resolved]
  - Testicular microlithiasis [Unknown]
  - Blood testosterone decreased [Unknown]
  - Thyroid disorder [Unknown]
  - Hypothyroidism [Unknown]
  - Testicular atrophy [Unknown]
  - Ejaculation failure [Unknown]
  - Semen volume decreased [Unknown]
  - Sexual dysfunction [Not Recovered/Not Resolved]
